FAERS Safety Report 11752275 (Version 1)
Quarter: 2015Q4

REPORT INFORMATION
  Report Type: Spontaneous
  Country: US (occurrence: US)
  Receive Date: 20151118
  Receipt Date: 20151118
  Transmission Date: 20160304
  Serious: No
  Sender: FDA-Public Use
  Company Number: US-FRESENIUS KABI-FK201505892

PATIENT
  Age: 77 Year
  Sex: Male
  Weight: 90.8 kg

DRUGS (2)
  1. METHYLPREDNISOLONE SODIUM SUCCINATE INJECTION, USP [Suspect]
     Active Substance: METHYLPREDNISOLONE SODIUM SUCCINATE
     Indication: GOUT
     Route: 030
  2. METHYLPREDNISOLONE SODIUM SUCCINATE INJECTION, USP [Suspect]
     Active Substance: METHYLPREDNISOLONE SODIUM SUCCINATE
     Indication: ARTHRITIS

REACTIONS (1)
  - Drug effect decreased [Unknown]

NARRATIVE: CASE EVENT DATE: 20151026
